FAERS Safety Report 19655584 (Version 1)
Quarter: 2021Q3

REPORT INFORMATION
  Report Type: Spontaneous
  Country: US (occurrence: US)
  Receive Date: 20210803
  Receipt Date: 20210803
  Transmission Date: 20211014
  Serious: Yes (Death)
  Sender: FDA-Public Use
  Company Number: None

PATIENT
  Age: 41 Year
  Sex: Male
  Weight: 71.7 kg

DRUGS (3)
  1. ALTEPLASE. [Suspect]
     Active Substance: ALTEPLASE
     Indication: ISCHAEMIC STROKE
     Dosage: ?          OTHER FREQUENCY:ONCE;?
     Route: 042
     Dates: start: 20210403, end: 20210403
  2. ISOVUE 370 [Concomitant]
     Active Substance: IOPAMIDOL
     Dates: start: 20210403, end: 20210403
  3. LORAZEPAM 0.5 MG [Concomitant]
     Active Substance: LORAZEPAM
     Dates: start: 20210403, end: 20210403

REACTIONS (9)
  - Neurosyphilis [None]
  - Swollen tongue [None]
  - Respiratory failure [None]
  - Infection [None]
  - Locked-in syndrome [None]
  - Angioedema [None]
  - Dyspnoea [None]
  - Stridor [None]
  - Inflammation [None]

NARRATIVE: CASE EVENT DATE: 20210403
